FAERS Safety Report 8457199 (Version 2)
Quarter: 2013Q3

REPORT INFORMATION
  Report Type: Spontaneous
  Country: US (occurrence: US)
  Receive Date: 20120313
  Receipt Date: 20130802
  Transmission Date: 20140515
  Serious: Yes (Other)
  Sender: FDA-Public Use
  Company Number: CHPA2012US004119

PATIENT
  Age: 54 Year
  Sex: Male

DRUGS (2)
  1. EXCEDRIN TENSION HEADACHE [Suspect]
     Indication: INSOMNIA
     Dosage: 4-6 DF, QD
     Route: 048
     Dates: end: 20120225
  2. EXCEDRIN TENSION HEADACHE [Suspect]
     Indication: HEADACHE

REACTIONS (9)
  - Drug dependence [Not Recovered/Not Resolved]
  - Nasopharyngitis [Recovered/Resolved]
  - Feeling abnormal [Recovered/Resolved]
  - Neck pain [Unknown]
  - Insomnia [Recovered/Resolved]
  - Therapeutic response unexpected [Unknown]
  - Off label use [Unknown]
  - Incorrect drug administration duration [Unknown]
  - Underdose [Unknown]
